FAERS Safety Report 9707505 (Version 2)
Quarter: 2013Q4

REPORT INFORMATION
  Report Type: Spontaneous
  Country: US (occurrence: US)
  Receive Date: 20131125
  Receipt Date: 20131210
  Transmission Date: 20140711
  Serious: No
  Sender: FDA-Public Use
  Company Number: US-TEVA-375455USA

PATIENT
  Age: 45 Year
  Sex: Female
  Weight: 114.86 kg

DRUGS (7)
  1. PARAGARD 380A [Suspect]
     Indication: CONTRACEPTION
     Route: 015
     Dates: start: 2002, end: 20121211
  2. CELEXA [Concomitant]
  3. NORVASC [Concomitant]
     Indication: HYPERTENSION
  4. LISINOPRIL [Concomitant]
  5. CRESTOR [Concomitant]
  6. PRILOSEC [Concomitant]
  7. CHANTIX [Concomitant]

REACTIONS (1)
  - Medical device complication [Not Recovered/Not Resolved]
